FAERS Safety Report 14663342 (Version 1)
Quarter: 2018Q1

REPORT INFORMATION
  Report Type: Spontaneous
  Country: US (occurrence: US)
  Receive Date: 20180321
  Receipt Date: 20180321
  Transmission Date: 20180509
  Serious: No
  Sender: FDA-Public Use
  Company Number: US-ASTRAZENECA-2018SE22109

PATIENT

DRUGS (27)
  1. LIPITOR [Suspect]
     Active Substance: ATORVASTATIN CALCIUM
     Route: 065
  2. NORVASC [Suspect]
     Active Substance: AMLODIPINE BESYLATE
     Dosage: 5.0MG UNKNOWN
     Route: 065
  3. PENICILLIN NOS [Concomitant]
     Active Substance: PENICILLIN
  4. SINGULAIR [Concomitant]
     Active Substance: MONTELUKAST SODIUM
     Dosage: 10.0MG UNKNOWN
  5. CRESTOR [Suspect]
     Active Substance: ROSUVASTATIN CALCIUM
     Route: 048
  6. LINCOCIN [Concomitant]
     Active Substance: LINCOMYCIN
  7. CODEINE [Concomitant]
     Active Substance: CODEINE
  8. COZAAR [Concomitant]
     Active Substance: LOSARTAN POTASSIUM
     Dosage: 100.0MG UNKNOWN
  9. CHANTIX [Suspect]
     Active Substance: VARENICLINE TARTRATE
     Route: 065
  10. FOLBIC RF [Concomitant]
     Dosage: 25-2 MG
  11. PERCOCET [Concomitant]
     Active Substance: ACETAMINOPHEN\OXYCODONE HYDROCHLORIDE
     Dosage: 7.5-325 MG
  12. OPTIVE [Concomitant]
     Active Substance: CARBOXYMETHYLCELLULOSE SODIUM\GLYCERIN
  13. STARLIX [Concomitant]
     Active Substance: NATEGLINIDE
     Dosage: 60.0MG UNKNOWN
  14. ASPIRIN. [Concomitant]
     Active Substance: ASPIRIN
  15. PROMETHAZINE [Concomitant]
     Active Substance: PROMETHAZINE\PROMETHAZINE HYDROCHLORIDE
  16. LYRICA [Suspect]
     Active Substance: PREGABALIN
     Dosage: 200.0MG UNKNOWN
     Route: 065
  17. TEMAZEPAM. [Concomitant]
     Active Substance: TEMAZEPAM
  18. CYMBALTA [Concomitant]
     Active Substance: DULOXETINE HYDROCHLORIDE
  19. AMARYL [Concomitant]
     Active Substance: GLIMEPIRIDE
  20. HYDRODIURIL [Concomitant]
     Active Substance: HYDROCHLOROTHIAZIDE
  21. K-DUR [Concomitant]
     Active Substance: POTASSIUM CHLORIDE
     Dosage: 10.0MEQ UNKNOWN
  22. ZANTAC [Concomitant]
     Active Substance: RANITIDINE HYDROCHLORIDE
     Dosage: 150.0MG UNKNOWN
  23. DEXILANT [Concomitant]
     Active Substance: DEXLANSOPRAZOLE
  24. PREMARIN VAGINAL [Suspect]
     Active Substance: ESTROGENS, CONJUGATED
     Route: 067
  25. HYDROCODONE [Concomitant]
     Active Substance: HYDROCODONE
  26. ZETIA [Concomitant]
     Active Substance: EZETIMIBE
  27. PROVENTIL HFA [Concomitant]
     Active Substance: ALBUTEROL SULFATE
     Dosage: 108 MCG/ACT INHALER

REACTIONS (13)
  - Hypokalaemia [Unknown]
  - Sciatica [Unknown]
  - Aortic arteriosclerosis [Unknown]
  - Limb injury [Unknown]
  - Hypotension [Unknown]
  - Fatigue [Unknown]
  - Insomnia [Unknown]
  - Restless legs syndrome [Unknown]
  - Mass [Unknown]
  - Hypertension [Unknown]
  - Respiratory disorder [Unknown]
  - Essential hypertension [Unknown]
  - Drug hypersensitivity [Unknown]
